FAERS Safety Report 25357834 (Version 1)
Quarter: 2025Q2

REPORT INFORMATION
  Report Type: Spontaneous
  Country: US (occurrence: US)
  Receive Date: 20250526
  Receipt Date: 20250526
  Transmission Date: 20250717
  Serious: Yes (Other)
  Sender: PIRAMAL
  Company Number: US-PCCINC-2025-PPL-000307

PATIENT

DRUGS (1)
  1. GABLOFEN [Suspect]
     Active Substance: BACLOFEN
     Indication: Product used for unknown indication
     Dosage: 50 MICROGRAM, QD
     Route: 037

REACTIONS (1)
  - Meningitis [Recovered/Resolved]
